FAERS Safety Report 14623706 (Version 1)
Quarter: 2018Q1

REPORT INFORMATION
  Report Type: Spontaneous
  Country: US (occurrence: US)
  Receive Date: 20180312
  Receipt Date: 20180312
  Transmission Date: 20180509
  Serious: No
  Sender: FDA-Public Use
  Company Number: PHEH2018US009485

PATIENT
  Age: 78 Year
  Sex: Male
  Weight: 65.8 kg

DRUGS (1)
  1. JADENU [Suspect]
     Active Substance: DEFERASIROX
     Indication: IRON OVERLOAD
     Dosage: 360 MG, QD (5 DAYS/WEEKLY)
     Route: 065
     Dates: end: 20171230

REACTIONS (6)
  - Pruritus [Recovering/Resolving]
  - Sleep disorder [Unknown]
  - Haematocrit decreased [Unknown]
  - Serum ferritin increased [Unknown]
  - Red blood cell count decreased [Unknown]
  - Monocyte count decreased [Unknown]

NARRATIVE: CASE EVENT DATE: 20171225
